FAERS Safety Report 9172359 (Version 2)
Quarter: 2013Q1

REPORT INFORMATION
  Report Type: Report from Study
  Country: ES (occurrence: ES)
  Receive Date: 20130319
  Receipt Date: 20130325
  Transmission Date: 20140127
  Serious: Yes (Life-Threatening, Hospitalization)
  Sender: FDA-Public Use
  Company Number: ES-BAYER-2013-034186

PATIENT
  Age: 66 Year
  Sex: Female

DRUGS (6)
  1. ADIRO 100 MG [Suspect]
     Indication: PROPHYLAXIS
     Dosage: 100 MG, QD
     Dates: start: 2008
  2. SINTROM [Interacting]
     Indication: ATRIAL FIBRILLATION
     Route: 048
     Dates: end: 20120511
  3. DIGOXIN [DIGOXIN] [Concomitant]
     Indication: ATRIAL FIBRILLATION
     Route: 048
  4. DIANBEN [Concomitant]
     Indication: DIABETES MELLITUS
     Route: 048
     Dates: end: 20120511
  5. SEGURIL [Concomitant]
     Indication: CARDIAC FAILURE
     Dosage: 20 MG, QD
     Route: 048
     Dates: start: 2008, end: 20120511
  6. AMERIDE [Concomitant]
     Indication: CARDIAC FAILURE
     Route: 048
     Dates: start: 2008

REACTIONS (1)
  - International normalised ratio increased [Recovered/Resolved]
